FAERS Safety Report 11625970 (Version 2)
Quarter: 2016Q1

REPORT INFORMATION
  Report Type: Spontaneous
  Country: US (occurrence: US)
  Receive Date: 20151013
  Receipt Date: 20160219
  Transmission Date: 20160525
  Serious: No
  Sender: FDA-Public Use
  Company Number: US-009507513-1510USA006128

PATIENT
  Age: 18 Year
  Sex: Female
  Weight: 120.64 kg

DRUGS (2)
  1. NEXPLANON [Suspect]
     Active Substance: ETONOGESTREL
     Dosage: UNK
     Route: 059
     Dates: start: 20151014
  2. NEXPLANON [Suspect]
     Active Substance: ETONOGESTREL
     Indication: CONTRACEPTION
     Dosage: 1 ROD PER 3 YEARS
     Route: 059
     Dates: start: 20150223, end: 20151014

REACTIONS (7)
  - Device breakage [Recovered/Resolved]
  - Implant site irritation [Recovered/Resolved]
  - Implant site erythema [Recovered/Resolved]
  - Implant site rash [Recovered/Resolved]
  - Implant site inflammation [Recovered/Resolved]
  - Implant site warmth [Recovered/Resolved]
  - Implant site pain [Recovered/Resolved]

NARRATIVE: CASE EVENT DATE: 2015
